FAERS Safety Report 9598942 (Version 1)
Quarter: 2013Q4

REPORT INFORMATION
  Report Type: Spontaneous
  Country: US (occurrence: US)
  Receive Date: 20131004
  Receipt Date: 20131004
  Transmission Date: 20140711
  Serious: No
  Sender: FDA-Public Use
  Company Number: US-AMGEN-USASP2013026502

PATIENT
  Age: 45 Year
  Sex: Male
  Weight: 55.33 kg

DRUGS (1)
  1. ENBREL [Suspect]
     Indication: RHEUMATOID ARTHRITIS
     Dosage: 50 MG, QWK
     Route: 058
     Dates: start: 20120301, end: 20130403

REACTIONS (4)
  - Condition aggravated [Unknown]
  - Local swelling [Unknown]
  - Joint swelling [Unknown]
  - Drug ineffective [Unknown]
